FAERS Safety Report 8888692 (Version 1)
Quarter: 2012Q4

REPORT INFORMATION
  Report Type: 
  Country: PL (occurrence: PL)
  Receive Date: 20121106
  Receipt Date: 20121106
  Transmission Date: 20130627
  Serious: Yes (Other)
  Sender: FDA-Public Use
  Company Number: PL-GLAXOSMITHKLINE-B0561169A

PATIENT
  Age: 63 Year
  Sex: Female

DRUGS (5)
  1. SEROXAT [Suspect]
     Indication: DEPRESSION
     Dosage: 20MG Per day
     Route: 048
     Dates: start: 20090113
  2. LEXOTAN [Concomitant]
  3. PROPRANOLOL [Concomitant]
     Dosage: 10MG Per day
  4. BELLERGOT [Concomitant]
  5. DIOSMIN [Concomitant]

REACTIONS (3)
  - Visual acuity reduced [Not Recovered/Not Resolved]
  - Vision blurred [Unknown]
  - Eye disorder [Unknown]
